FAERS Safety Report 7638560-X (Version None)
Quarter: 2011Q3

REPORT INFORMATION
  Report Type: 
  Country: None (occurrence: None)
  Receive Date: 20110727
  Receipt Date: 20110725
  Transmission Date: 20111222
  Serious: Yes (Death, Other)
  Sender: FDA-Public Use
  Company Number: PHHY2011CA57585

PATIENT
  Sex: Male

DRUGS (1)
  1. CLOZARIL [Suspect]
     Dates: start: 20060804

REACTIONS (3)
  - DEATH [None]
  - COLON CANCER [None]
  - METASTASES TO BONE [None]
